FAERS Safety Report 25023693 (Version 1)
Quarter: 2025Q1

REPORT INFORMATION
  Report Type: Spontaneous
  Country: FI (occurrence: FI)
  Receive Date: 20250228
  Receipt Date: 20250228
  Transmission Date: 20250409
  Serious: Yes (Other)
  Sender: CHEPLAPHARM
  Company Number: None

PATIENT
  Age: 25 Year
  Sex: Female

DRUGS (18)
  1. OLANZAPINE [Suspect]
     Active Substance: OLANZAPINE
     Indication: Product used for unknown indication
     Dates: end: 20200623
  2. CLOZAPINE [Suspect]
     Active Substance: CLOZAPINE
     Indication: Psychotic disorder
     Dosage: 125 MG, DAILY; ONGOING AT 125 MG ON EVENINGS?DAILY DOSE: 125 MILLIGRAM
     Dates: start: 20200616
  3. FUROSEMIDE [Concomitant]
     Active Substance: FUROSEMIDE
     Dosage: 80 MG, EVERY 12 HOURS?DAILY DOSE: 160 MILLIGRAM
     Dates: start: 20200302
  4. FUROSEMIDE [Concomitant]
     Active Substance: FUROSEMIDE
  5. DIAZEPAM [Concomitant]
     Active Substance: DIAZEPAM
     Dates: start: 20200302
  6. ASCORBIC ACID\BIOTIN\CALCIUM PANTOTHENATE\CYANOCOBALAMIN\FOLIC ACID\NI [Concomitant]
     Active Substance: ASCORBIC ACID\BIOTIN\CALCIUM PANTOTHENATE\CYANOCOBALAMIN\FOLIC ACID\NIACINAMIDE\PYRIDOXINE HYDROCHLO
     Dosage: 1 DOSAGE FORM, DAILY?DAILY DOSE: 1 DOSAGE FORM
  7. NICOTINELL [Concomitant]
     Active Substance: NICOTINE
     Dates: start: 20200316
  8. AMLODIPINE [Concomitant]
     Active Substance: AMLODIPINE BESYLATE
     Dosage: 10 MG, EVERY 12 HOURS?DAILY DOSE: 20 MILLIGRAM
     Dates: start: 20200706
  9. LACTULOSE [Concomitant]
     Active Substance: LACTULOSE
     Dates: start: 20200623
  10. NEXPLANON [Concomitant]
     Active Substance: ETONOGESTREL
     Route: 058
     Dates: start: 20170921
  11. TRAMADOL [Concomitant]
     Active Substance: TRAMADOL
     Indication: Headache
     Dates: start: 20200721
  12. ARANESP [Concomitant]
     Active Substance: DARBEPOETIN ALFA
     Dosage: 60 MCG EVERY 30 DAYS
     Dates: end: 20200618
  13. ACETAMINOPHEN [Concomitant]
     Active Substance: ACETAMINOPHEN
     Dates: start: 20200303
  14. PANTOPRAZOLE [Concomitant]
     Active Substance: PANTOPRAZOLE
     Dosage: 40 MG, DAILY?DAILY DOSE: 40 MILLIGRAM
     Dates: start: 20200729
  15. Calcichew D Forte [Concomitant]
     Dosage: 500 MG/10 MCG, AT 1X1/DAILY
  16. PRIMPERAN [Concomitant]
     Active Substance: METOCLOPRAMIDE HYDROCHLORIDE
     Dosage: 10 MG, DAILY WHEN NEEDED?DAILY DOSE: 10 MILLIGRAM
     Dates: start: 20200722
  17. BISOPROLOL FUMARATE [Concomitant]
     Active Substance: BISOPROLOL FUMARATE
     Dosage: 1.25 MG, EVERY 12 HOURAS?DAILY DOSE: 2.5 MILLIGRAM
     Dates: start: 20200709
  18. RESONIUM [Concomitant]
     Active Substance: SODIUM POLYSTYRENE SULFONATE
     Dates: start: 20200304

REACTIONS (1)
  - Electrocardiogram QT prolonged [Recovered/Resolved]

NARRATIVE: CASE EVENT DATE: 20200601
